FAERS Safety Report 13062884 (Version 1)
Quarter: 2016Q4

REPORT INFORMATION
  Report Type: Spontaneous
  Country: JP (occurrence: JP)
  Receive Date: 20161226
  Receipt Date: 20161226
  Transmission Date: 20170207
  Serious: Yes (Life-Threatening, Hospitalization, Other)
  Sender: FDA-Public Use
  Company Number: JP-ROCHE-1846733

PATIENT
  Age: 67 Year
  Sex: Male
  Weight: 59 kg

DRUGS (10)
  1. ELPLAT [Suspect]
     Active Substance: OXALIPLATIN
     Indication: RECTAL CANCER
     Route: 041
     Dates: start: 20160812, end: 20160901
  2. ALLEGRA [Concomitant]
     Active Substance: FEXOFENADINE HYDROCHLORIDE
     Indication: PROPHYLAXIS OF NAUSEA AND VOMITING
     Dosage: TAKEN FOR ONLY ON THE CHEMICAL TREATMENT DAY.
     Route: 048
     Dates: start: 20160812, end: 20160926
  3. AVASTIN [Suspect]
     Active Substance: BEVACIZUMAB
     Indication: RECTAL CANCER
     Dosage: DOSAGE IS UNCERTAIN.
     Route: 041
     Dates: start: 20160905, end: 20160926
  4. ELPLAT [Suspect]
     Active Substance: OXALIPLATIN
     Indication: RECTAL CANCER
     Route: 041
     Dates: start: 20160905, end: 20160926
  5. DECADRON [Concomitant]
     Active Substance: DEXAMETHASONE
     Indication: PROPHYLAXIS OF NAUSEA AND VOMITING
     Dosage: TAKEN FOR ONLY ON THE CHEMICAL TREATMENT DAY.
     Route: 048
     Dates: start: 20160812, end: 20160926
  6. MAGMITT [Concomitant]
     Active Substance: MAGNESIUM OXIDE
     Indication: GASTROINTESTINAL DISORDER
     Route: 048
     Dates: start: 20160713
  7. DEXART [Concomitant]
     Active Substance: DEXAMETHASONE SODIUM PHOSPHATE
     Indication: PROPHYLAXIS OF NAUSEA AND VOMITING
     Dosage: TAKEN FOR ONLY ON THE CHEMICAL TREATMENT DAY.
     Route: 041
     Dates: start: 20160812, end: 20160926
  8. TS-1 [Suspect]
     Active Substance: GIMERACIL\OTERACIL\TEGAFUR
     Indication: RECTAL CANCER
     Route: 048
     Dates: start: 20160812, end: 20160901
  9. TS-1 [Suspect]
     Active Substance: GIMERACIL\OTERACIL\TEGAFUR
     Indication: RECTAL CANCER
     Route: 048
     Dates: start: 20160905, end: 20160926
  10. GRANISETRON [Concomitant]
     Active Substance: GRANISETRON
     Indication: PROPHYLAXIS OF NAUSEA AND VOMITING
     Dosage: TAKEN FOR ONLY ON THE CHEMICAL TREATMENT DAY.
     Route: 041
     Dates: start: 20160812, end: 20160926

REACTIONS (9)
  - Tumour necrosis [Unknown]
  - Anaemia [Unknown]
  - Enterocolitis [Unknown]
  - Staphylococcus test positive [Unknown]
  - Metastases to adrenals [Unknown]
  - Diarrhoea [Recovering/Resolving]
  - Influenza [Unknown]
  - Tumour perforation [Recovering/Resolving]
  - Rectal abscess [Recovering/Resolving]

NARRATIVE: CASE EVENT DATE: 201609
